FAERS Safety Report 9177500 (Version 2)
Quarter: 2013Q2

REPORT INFORMATION
  Report Type: Spontaneous
  Country: IN (occurrence: IN)
  Receive Date: 20130321
  Receipt Date: 20130412
  Transmission Date: 20140414
  Serious: Yes (Hospitalization, Other)
  Sender: FDA-Public Use
  Company Number: PHHY2013IN025743

PATIENT
  Age: 29 Year
  Sex: Male

DRUGS (7)
  1. SIMULECT [Suspect]
     Indication: PROPHYLAXIS AGAINST TRANSPLANT REJECTION
     Dosage: 20 MG, UNK
     Route: 042
     Dates: start: 20130211
  2. RITUXIMAB [Concomitant]
     Dosage: 500 MG, UNK
  3. METHYLPREDNISOLONE [Concomitant]
     Dosage: 1 G, UNK
  4. METHYLPREDNISOLONE [Concomitant]
     Dosage: 2.5 G, UNK
  5. ANTITHYMOCYTE IMMUNOGLOBULIN [Concomitant]
     Dosage: 50 MG, UNK
  6. BASILIXIMAB [Concomitant]
     Dosage: 40 MG, UNK
  7. IMMUNOSUPPRESSANTS [Concomitant]
     Dosage: UNK

REACTIONS (16)
  - Renal failure chronic [Recovering/Resolving]
  - Ascites [Recovering/Resolving]
  - Renal atrophy [Recovering/Resolving]
  - Renal tubular disorder [Recovering/Resolving]
  - Renal haemorrhage [Recovering/Resolving]
  - Renal vein thrombosis [Recovering/Resolving]
  - Kidney transplant rejection [Recovering/Resolving]
  - Urine output decreased [Recovering/Resolving]
  - Thrombotic microangiopathy [Recovering/Resolving]
  - Pleural effusion [Recovering/Resolving]
  - Cholelithiasis [Recovering/Resolving]
  - Ureteric dilatation [Unknown]
  - Haemoglobin decreased [Unknown]
  - Hypertension [Recovering/Resolving]
  - Blood glucose increased [Recovering/Resolving]
  - Lymphocyte count decreased [Unknown]
